FAERS Safety Report 12790519 (Version 4)
Quarter: 2016Q4

REPORT INFORMATION
  Report Type: Spontaneous
  Country: US (occurrence: US)
  Receive Date: 20160929
  Receipt Date: 20161122
  Transmission Date: 20170207
  Serious: No
  Sender: FDA-Public Use
  Company Number: US-ACTELION-A-US2016-142876

PATIENT
  Age: 75 Year
  Sex: Female
  Weight: 92.63 kg

DRUGS (20)
  1. LETAIRIS [Suspect]
     Active Substance: AMBRISENTAN
     Indication: PULMONARY HYPERTENSION
     Dosage: 10 MG, QD
     Route: 048
     Dates: start: 20140117
  2. ADCIRCA [Concomitant]
     Active Substance: TADALAFIL
  3. UPTRAVI [Suspect]
     Active Substance: SELEXIPAG
     Dosage: 1600 MCG, BID
     Route: 048
     Dates: start: 20160729
  4. ENULOSE [Concomitant]
     Active Substance: LACTULOSE
  5. PNEUMOVAX 23 [Concomitant]
     Active Substance: PNEUMOCOCCAL VACCINE, POLYVALENT 23
  6. BREO ELLIPTA [Concomitant]
     Active Substance: FLUTICASONE FUROATE\VILANTEROL TRIFENATATE
  7. CRESTOR [Concomitant]
     Active Substance: ROSUVASTATIN CALCIUM
  8. UPTRAVI [Suspect]
     Active Substance: SELEXIPAG
     Dosage: 800 MCG, BID
     Route: 048
  9. UPTRAVI [Suspect]
     Active Substance: SELEXIPAG
     Dosage: 1200 MCG, BID
     Route: 048
  10. BENADRYL [Concomitant]
     Active Substance: DIPHENHYDRAMINE HYDROCHLORIDE
  11. AZELASTINE [Concomitant]
     Active Substance: AZELASTINE
  12. KLOR-CON [Concomitant]
     Active Substance: POTASSIUM CHLORIDE
  13. ULTRAM [Concomitant]
     Active Substance: TRAMADOL HYDROCHLORIDE
  14. ZOFRAN [Concomitant]
     Active Substance: ONDANSETRON HYDROCHLORIDE
  15. UPTRAVI [Suspect]
     Active Substance: SELEXIPAG
     Indication: PULMONARY HYPERTENSION
     Dosage: 1400 MCG, BID
     Route: 048
     Dates: start: 20160729
  16. MUCINEX [Concomitant]
     Active Substance: GUAIFENESIN
  17. SPIRIVA [Concomitant]
     Active Substance: TIOTROPIUM BROMIDE MONOHYDRATE
  18. ALBUTEROL SULFATE. [Concomitant]
     Active Substance: ALBUTEROL SULFATE
  19. FUROSEMIDE. [Concomitant]
     Active Substance: FUROSEMIDE
  20. ALBUTEROL. [Concomitant]
     Active Substance: ALBUTEROL

REACTIONS (14)
  - Malaise [Unknown]
  - Bone pain [Recovered/Resolved]
  - Pain in extremity [Unknown]
  - Dry mouth [Recovered/Resolved]
  - Nausea [Unknown]
  - Bronchitis [Recovering/Resolving]
  - Nasopharyngitis [Not Recovered/Not Resolved]
  - Insomnia [Unknown]
  - Sinusitis [Not Recovered/Not Resolved]
  - Cellulitis [Unknown]
  - Arthralgia [Recovered/Resolved]
  - Nasal discomfort [Unknown]
  - Infection [Unknown]
  - Headache [Unknown]

NARRATIVE: CASE EVENT DATE: 201609
